FAERS Safety Report 7056145-3 (Version None)
Quarter: 2010Q4

REPORT INFORMATION
  Report Type: 
  Country: None (occurrence: None)
  Receive Date: 20101018
  Receipt Date: 20101001
  Transmission Date: 20110411
  Serious: Yes (Other)
  Sender: FDA-Public Use
  Company Number: 2010AP001982

PATIENT
  Age: 64 Year
  Sex: Male

DRUGS (2)
  1. TERBINAFINE HCL [Suspect]
     Indication: ONYCHOMYCOSIS
     Dosage: 1 TAB;QD;PO
     Route: 048
     Dates: start: 20091101, end: 20091201
  2. IBUPROFEN [Concomitant]

REACTIONS (1)
  - NEUROPATHY PERIPHERAL [None]
